FAERS Safety Report 7443488-4 (Version None)
Quarter: 2011Q2

REPORT INFORMATION
  Report Type: 
  Country: None (occurrence: None)
  Receive Date: 20110428
  Receipt Date: 20110425
  Transmission Date: 20111010
  Serious: Yes (Other)
  Sender: FDA-Public Use
  Company Number: BR-PFIZER INC-2011037320

PATIENT
  Age: 30 Year
  Sex: Male
  Weight: 110 kg

DRUGS (7)
  1. AKINETON [Concomitant]
     Dosage: UNK
  2. PHENERGAN [Concomitant]
     Dosage: UNK
  3. SEROQUEL [Concomitant]
     Dosage: UNK
  4. PARACETAMOL/ CAFFEINE [Concomitant]
     Dosage: UNK
  5. CHAMPIX [Suspect]
     Indication: TOBACCO USER
     Dosage: UNK
     Route: 048
  6. CHAMPIX [Suspect]
     Dosage: 1 MG, 2X/DAY
     Route: 048
  7. DORMONID [Concomitant]
     Dosage: UNK

REACTIONS (3)
  - AGGRESSION [None]
  - BLOOD PRESSURE INCREASED [None]
  - DYSPNOEA [None]
